FAERS Safety Report 9399813 (Version 6)
Quarter: 2014Q1

REPORT INFORMATION
  Report Type: Report from Study
  Country: BR (occurrence: BR)
  Receive Date: 20130715
  Receipt Date: 20140130
  Transmission Date: 20141002
  Serious: Yes (Hospitalization)
  Sender: FDA-Public Use
  Company Number: PHHY2013BR074310

PATIENT
  Age: 77 Year
  Sex: Female
  Weight: 56 kg

DRUGS (8)
  1. DIOVAN [Suspect]
     Indication: BLOOD PRESSURE ABNORMAL
     Dosage: 80 MG, DAILY
  2. DIOVAN [Suspect]
     Dosage: 1 DF(160MG), DAILY
     Route: 048
     Dates: start: 20130618
  3. DIOVAN [Suspect]
     Dosage: 0.5 DF (160MG), UKN
  4. DIOVAN [Suspect]
     Dosage: 160 MG, DAILY
  5. DIOVAN [Suspect]
     Dosage: 1 DF (160 MG), BID (ONE TABLET IN THE MORNING AND ONE TABLET AT NIGHT)
  6. HIGROTON [Concomitant]
     Indication: DIURETIC THERAPY
     Dosage: 25 MG, ONE TABLET DAILY
     Route: 048
  7. COUMADINE [Concomitant]
     Indication: MITRAL VALVE STENOSIS
     Dosage: 2 MG, DAILY
     Route: 048
  8. PROPANOLOL [Concomitant]
     Indication: ARRHYTHMIA
     Dosage: 40 MG, ONE TABLET DAILY
     Route: 048
     Dates: start: 2007

REACTIONS (8)
  - Malaise [Recovered/Resolved]
  - Nasopharyngitis [Recovered/Resolved]
  - Cough [Recovered/Resolved]
  - Dizziness [Recovered/Resolved]
  - Back pain [Recovered/Resolved]
  - Blood pressure increased [Unknown]
  - Drug ineffective [Recovered/Resolved]
  - Wrong technique in drug usage process [Unknown]
